FAERS Safety Report 21840669 (Version 1)
Quarter: 2023Q1

REPORT INFORMATION
  Report Type: Spontaneous
  Country: GB (occurrence: GB)
  Receive Date: 20230110
  Receipt Date: 20230110
  Transmission Date: 20230417
  Serious: Yes (Other)
  Sender: FDA-Public Use
  Company Number: None

PATIENT
  Age: 77 Year
  Sex: Female

DRUGS (1)
  1. LINEZOLID [Suspect]
     Active Substance: LINEZOLID
     Indication: Product used for unknown indication
     Dosage: UNK
     Route: 065
     Dates: start: 20221221, end: 20221222

REACTIONS (3)
  - Lip swelling [Not Recovered/Not Resolved]
  - Urticaria [Not Recovered/Not Resolved]
  - Pruritus [Not Recovered/Not Resolved]
